FAERS Safety Report 15311573 (Version 1)
Quarter: 2018Q4

REPORT INFORMATION
  Report Type: Spontaneous
  Country: JP (occurrence: JP)
  Receive Date: 20180823
  Receipt Date: 20180823
  Transmission Date: 20190204
  Serious: Yes (Hospitalization)
  Sender: FDA-Public Use
  Company Number: JP-TAIHO ONCOLOGY  INC-JPTT180402

PATIENT
  Age: 73 Year
  Sex: Female
  Weight: 51 kg

DRUGS (8)
  1. LONSURF [Suspect]
     Active Substance: TIPIRACIL HYDROCHLORIDE\TRIFLURIDINE
     Dosage: ON DAYS 1-5 AND 8-12 OF EACH 28-DAY CYCLE, CYCLE 4
     Dates: start: 20160727, end: 20160809
  2. HACHIAZULE [Concomitant]
     Route: 002
  3. TULOBUTEROL [Concomitant]
     Active Substance: TULOBUTEROL
     Route: 046
     Dates: start: 20160727, end: 20160816
  4. LONSURF [Suspect]
     Active Substance: TIPIRACIL HYDROCHLORIDE\TRIFLURIDINE
     Indication: COLON CANCER METASTATIC
     Dosage: ON DAYS 1-5 AND 8-12 OF EACH 28-DAY CYCLE, CYCLES 1-3
     Route: 048
     Dates: start: 20160413
  5. BELSOMRA [Concomitant]
     Active Substance: SUVOREXANT
     Route: 048
     Dates: start: 20160727, end: 20160816
  6. ALLEGRA [Concomitant]
     Active Substance: FEXOFENADINE HYDROCHLORIDE
     Route: 048
     Dates: start: 20160727, end: 20160816
  7. LOXONIN [Concomitant]
     Active Substance: LOXOPROFEN SODIUM
     Route: 048
     Dates: start: 20160727, end: 20160816
  8. PROTECADIN OD [Concomitant]
     Active Substance: LAFUTIDINE
     Route: 048
     Dates: start: 20160727, end: 20160816

REACTIONS (5)
  - Febrile neutropenia [Recovered/Resolved]
  - Disseminated intravascular coagulation [Recovering/Resolving]
  - Cholangitis [Unknown]
  - Jaundice cholestatic [Recovered/Resolved]
  - Pancytopenia [Not Recovered/Not Resolved]

NARRATIVE: CASE EVENT DATE: 20160817
